FAERS Safety Report 21359654 (Version 3)
Quarter: 2023Q1

REPORT INFORMATION
  Report Type: Spontaneous
  Country: CA (occurrence: CA)
  Receive Date: 20220921
  Receipt Date: 20230321
  Transmission Date: 20230417
  Serious: Yes (Other)
  Sender: FDA-Public Use
  Company Number: CA-PFIZER INC-202200738799

PATIENT
  Age: 40 Year
  Sex: Female

DRUGS (1)
  1. ABRILADA [Suspect]
     Active Substance: ADALIMUMAB-AFZB
     Indication: Hidradenitis
     Dosage: 160 MG (WEEK 0 160 MG, WEEK 2 80 MG AND THEN 40 MG EVERY WEEK)
     Route: 058
     Dates: start: 20220506

REACTIONS (3)
  - Cholecystectomy [Unknown]
  - Pneumonia [Recovering/Resolving]
  - Condition aggravated [Recovered/Resolved]

NARRATIVE: CASE EVENT DATE: 20220513
